FAERS Safety Report 9057978 (Version 1)
Quarter: 2013Q1

REPORT INFORMATION
  Report Type: Spontaneous
  Country: US (occurrence: None)
  Receive Date: 20130117
  Receipt Date: 20130117
  Transmission Date: 20140127
  Serious: Yes (Death)
  Sender: FDA-Public Use
  Company Number: AUR-APL-2013-00242

PATIENT
  Age: 38 Year
  Sex: Female

DRUGS (4)
  1. ALPRAZOLAM [Suspect]
     Indication: PRODUCT USED FOR UNKNOWN INDICATION
  2. VENLAFAXINE [Suspect]
  3. ZOLPIDEM [Suspect]
  4. ACETAMINOPHEN [Suspect]

REACTIONS (2)
  - Completed suicide [None]
  - Toxicity to various agents [None]
